FAERS Safety Report 15711886 (Version 1)
Quarter: 2018Q4

REPORT INFORMATION
  Report Type: Spontaneous
  Country: IL (occurrence: IL)
  Receive Date: 20181212
  Receipt Date: 20181212
  Transmission Date: 20190205
  Serious: Yes (Hospitalization, Other)
  Sender: FDA-Public Use
  Company Number: IL-TEVA-2018-IL-985854

PATIENT
  Age: 79 Year
  Sex: Female
  Weight: 56 kg

DRUGS (3)
  1. FUSID [FUROSEMIDE] [Suspect]
     Active Substance: FUROSEMIDE
     Indication: HYPERTENSION
     Dates: start: 20120101
  2. ATACAND [Concomitant]
     Active Substance: CANDESARTAN CILEXETIL
  3. MONOCHORD [Concomitant]

REACTIONS (4)
  - Fall [Unknown]
  - Blood pressure decreased [Unknown]
  - Pelvic fracture [Unknown]
  - Orthostatic hypotension [Unknown]
